FAERS Safety Report 19610372 (Version 5)
Quarter: 2022Q4

REPORT INFORMATION
  Report Type: Spontaneous
  Country: CA (occurrence: CA)
  Receive Date: 20210726
  Receipt Date: 20221213
  Transmission Date: 20230113
  Serious: Yes (Other)
  Sender: FDA-Public Use
  Company Number: CA-AUROBINDO-AUR-APL-2021-030190

PATIENT
  Age: 53 Year
  Sex: Female
  Weight: 50 kg

DRUGS (64)
  1. ALENDRONIC ACID [Suspect]
     Active Substance: ALENDRONIC ACID
     Indication: Osteoporosis postmenopausal
     Dosage: 1 DOSAGE FORM, ONCE A DAY
     Route: 065
  2. ALENDRONIC ACID [Suspect]
     Active Substance: ALENDRONIC ACID
     Indication: Menopause
     Dosage: 1 DOSAGE FORM, EVERY WEEK
     Route: 065
  3. ALENDRONIC ACID [Suspect]
     Active Substance: ALENDRONIC ACID
     Indication: Osteoporosis
  4. CEFUROXIME [Suspect]
     Active Substance: CEFUROXIME
     Indication: Malaise
     Dosage: UNK
     Route: 065
  5. CEFUROXIME [Suspect]
     Active Substance: CEFUROXIME
     Indication: Fatigue
  6. CEFUROXIME [Suspect]
     Active Substance: CEFUROXIME
     Indication: Diarrhoea
  7. CEPHALEXIN [Suspect]
     Active Substance: CEPHALEXIN
     Indication: Vomiting
     Dosage: UNK
     Route: 065
  8. CEPHALEXIN [Suspect]
     Active Substance: CEPHALEXIN
     Indication: Malaise
  9. CEPHALEXIN [Suspect]
     Active Substance: CEPHALEXIN
     Indication: Dizziness
  10. CIPROFLOXACIN [Suspect]
     Active Substance: CIPROFLOXACIN
     Indication: Urticaria
     Dosage: UNK
     Route: 065
  11. CLOPIDOGREL [Suspect]
     Active Substance: CLOPIDOGREL BISULFATE
     Indication: Anticoagulant therapy
     Dosage: 1 DOSAGE FORM, ONCE A DAY
     Route: 065
  12. GABAPENTIN [Suspect]
     Active Substance: GABAPENTIN
     Indication: Product used for unknown indication
     Dosage: UNK
     Route: 065
  13. INDOMETHACIN [Suspect]
     Active Substance: INDOMETHACIN
     Indication: Vomiting
     Dosage: UNK
     Route: 065
  14. INDOMETHACIN [Suspect]
     Active Substance: INDOMETHACIN
     Indication: Vision blurred
     Dosage: UNK
     Route: 005
  15. INDOMETHACIN [Suspect]
     Active Substance: INDOMETHACIN
     Indication: Abdominal pain upper
  16. MOXIFLOXACIN [Suspect]
     Active Substance: MOXIFLOXACIN
     Indication: Rash
     Dosage: UNK
     Route: 065
  17. NITROFURANTOIN [Suspect]
     Active Substance: NITROFURANTOIN
     Dosage: UNK
     Route: 065
  18. PERINDOPRIL [Suspect]
     Active Substance: PERINDOPRIL
     Indication: Blood pressure abnormal
     Dosage: 1 DOSAGE FORM, ONCE A DAY
     Route: 065
  19. PERINDOPRIL [Suspect]
     Active Substance: PERINDOPRIL
     Indication: Blood pressure measurement
  20. ACETAMINOPHEN [Suspect]
     Active Substance: ACETAMINOPHEN
     Indication: Pruritus
     Dosage: UNK
     Route: 065
  21. ACETAMINOPHEN AND CODEINE [Suspect]
     Active Substance: ACETAMINOPHEN\CODEINE PHOSPHATE
     Indication: Pruritus
     Dosage: UNK
     Route: 065
  22. ALENDRONATE SODIUM\CHOLECALCIFEROL [Suspect]
     Active Substance: ALENDRONATE SODIUM\CHOLECALCIFEROL
     Indication: Osteoporosis postmenopausal
     Dosage: 1 DOSAGE FORM, EVERY WEEK
     Route: 065
  23. AMITRIPTYLINE [Suspect]
     Active Substance: AMITRIPTYLINE
     Indication: Depression
     Dosage: UNK
     Route: 065
  24. ATORVASTATIN [Suspect]
     Active Substance: ATORVASTATIN
     Indication: Product used for unknown indication
     Dosage: 300 MILLIGRAM
     Route: 048
  25. FUROSEMIDE [Suspect]
     Active Substance: FUROSEMIDE
     Indication: Fluid retention
     Dosage: UNK
     Route: 065
  26. SULFAMETHOXAZOLE\TRIMETHOPRIM [Suspect]
     Active Substance: SULFAMETHOXAZOLE\TRIMETHOPRIM
     Indication: Stomatitis
     Dosage: UNK
     Route: 065
  27. PERINDOPRIL ARGININE [Suspect]
     Active Substance: PERINDOPRIL ARGININE
     Indication: Blood pressure measurement
     Dosage: 1 DOSAGE FORM, ONCE A DAY
     Route: 048
  28. ATROVENT HFA [Suspect]
     Active Substance: IPRATROPIUM BROMIDE
     Indication: Product used for unknown indication
     Dosage: UNK
     Route: 065
  29. BREO ELLIPTA [Suspect]
     Active Substance: FLUTICASONE FUROATE\VILANTEROL TRIFENATATE
     Indication: Product used for unknown indication
     Dosage: 1 DOSAGE FORM, ONCE A DAY
  30. CAFFEINE [Suspect]
     Active Substance: CAFFEINE
     Indication: Pruritus
     Dosage: UNK
     Route: 065
  31. CEFUROXIME AXETIL [Suspect]
     Active Substance: CEFUROXIME AXETIL
     Indication: Malaise
     Dosage: UNK
     Route: 065
  32. CEFUROXIME AXETIL [Suspect]
     Active Substance: CEFUROXIME AXETIL
     Indication: Fatigue
  33. CEFUROXIME AXETIL [Suspect]
     Active Substance: CEFUROXIME AXETIL
     Indication: Diarrhoea
  34. CELEBREX [Suspect]
     Active Substance: CELECOXIB
     Indication: Oesophageal pain
     Dosage: UNK
     Route: 065
  35. CELEBREX [Suspect]
     Active Substance: CELECOXIB
     Indication: Abdominal pain upper
  36. CLARITHROMYCIN [Suspect]
     Active Substance: CLARITHROMYCIN
     Indication: Cystitis
     Dosage: UNK
     Route: 065
  37. CODEINE [Suspect]
     Active Substance: CODEINE
     Indication: Pruritus
     Dosage: UNK
     Route: 065
  38. CYMBALTA [Suspect]
     Active Substance: DULOXETINE HYDROCHLORIDE
     Indication: Depression
     Dosage: 1 DOSAGE FORM, ONCE A DAY
     Route: 065
  39. CYMBALTA [Suspect]
     Active Substance: DULOXETINE HYDROCHLORIDE
     Indication: Anxiety
  40. CYPROHEPTADINE HYDROCHLORIDE [Suspect]
     Active Substance: CYPROHEPTADINE HYDROCHLORIDE
     Indication: Urticaria
     Dosage: UNK
     Route: 065
  41. FERROUS GLUCONATE [Suspect]
     Active Substance: FERROUS GLUCONATE
     Indication: Iron deficiency
     Dosage: UNK
     Route: 065
  42. FLOVENT [Suspect]
     Active Substance: FLUTICASONE PROPIONATE
     Indication: Chronic obstructive pulmonary disease
     Dosage: 1 DOSAGE FORM, TWO TIMES A DAY
     Route: 065
  43. FLOVENT [Suspect]
     Active Substance: FLUTICASONE PROPIONATE
     Indication: Asthma
  44. NITROGLYCERIN [Suspect]
     Active Substance: NITROGLYCERIN
     Indication: Oesophageal spasm
     Dosage: UNK
     Route: 065
  45. GRAVOL [Suspect]
     Active Substance: DIMENHYDRINATE
     Indication: Anxiety
     Dosage: UNK
     Route: 065
  46. NOVORAPID [Suspect]
     Active Substance: INSULIN ASPART
     Indication: Type 2 diabetes mellitus
     Dosage: UNK
     Route: 058
  47. KETAMINE [Suspect]
     Active Substance: KETAMINE
     Indication: Hallucination
     Dosage: UNK
     Route: 065
  48. NAPROXEN SODIUM [Suspect]
     Active Substance: NAPROXEN SODIUM
     Indication: Pruritus
     Dosage: UNK
     Route: 065
  49. NALTREXONE [Suspect]
     Active Substance: NALTREXONE
     Indication: Product used for unknown indication
     Dosage: 750 MILLIGRAM
     Route: 048
  50. PENICILLIN G [Suspect]
     Active Substance: PENICILLIN G
     Indication: Product used for unknown indication
     Dosage: UNK
     Route: 065
  51. POTASSIUM CHLORIDE [Suspect]
     Active Substance: POTASSIUM CHLORIDE
     Indication: Product used for unknown indication
     Dosage: 3 DOSAGE FORM, ONCE A DAY
     Route: 065
  52. POTASSIUM CHLORIDE [Suspect]
     Active Substance: POTASSIUM CHLORIDE
     Dosage: 1 DOSAGE FORM
     Route: 065
  53. PREDNISONE [Suspect]
     Active Substance: PREDNISONE
     Indication: Product used for unknown indication
     Dosage: UNK
     Route: 065
  54. QUETIAPINE [Suspect]
     Active Substance: QUETIAPINE
     Indication: Product used for unknown indication
     Dosage: 3 GRAM
     Route: 048
  55. ALBUTEROL [Suspect]
     Active Substance: ALBUTEROL
     Indication: Product used for unknown indication
     Dosage: 2 DOSAGE FORM
     Route: 065
  56. ALBUTEROL [Suspect]
     Active Substance: ALBUTEROL
     Dosage: UNK
  57. SENOKOT [Suspect]
     Active Substance: SENNOSIDES
     Indication: Abdominal pain
     Dosage: UNK
     Route: 065
  58. SPIRIVA [Suspect]
     Active Substance: TIOTROPIUM BROMIDE MONOHYDRATE
     Indication: Product used for unknown indication
     Dosage: UNK
  59. TYLENOL WITH CODEINE [Suspect]
     Active Substance: ACETAMINOPHEN\CODEINE PHOSPHATE
     Indication: Pruritus
     Dosage: UNK
     Route: 065
  60. VALPROIC ACID [Suspect]
     Active Substance: VALPROIC ACID
     Indication: Product used for unknown indication
     Dosage: 15 MILLIGRAM
     Route: 048
  61. VIOXX [Suspect]
     Active Substance: ROFECOXIB
     Indication: Urticaria
     Dosage: UNK
     Route: 065
  62. VITAMIN D3 [Suspect]
     Active Substance: CHOLECALCIFEROL
     Indication: Osteoporosis postmenopausal
     Dosage: UNK
     Route: 065
  63. WELLBUTRIN [Suspect]
     Active Substance: BUPROPION HYDROCHLORIDE
     Indication: Urticaria
     Dosage: UNK
     Route: 065
  64. NITROGLYCERIN [Suspect]
     Active Substance: NITROGLYCERIN
     Indication: Oesophageal spasm
     Dosage: UNK
     Route: 065

REACTIONS (31)
  - Abdominal pain [Not Recovered/Not Resolved]
  - Abdominal pain upper [Not Recovered/Not Resolved]
  - Agitation [Not Recovered/Not Resolved]
  - Anxiety [Not Recovered/Not Resolved]
  - Bronchitis [Not Recovered/Not Resolved]
  - Cystitis [Not Recovered/Not Resolved]
  - Depression [Not Recovered/Not Resolved]
  - Diarrhoea [Not Recovered/Not Resolved]
  - Dizziness [Not Recovered/Not Resolved]
  - Fatigue [Not Recovered/Not Resolved]
  - Feeling abnormal [Not Recovered/Not Resolved]
  - Fibromyalgia [Not Recovered/Not Resolved]
  - Fluid retention [Not Recovered/Not Resolved]
  - Hallucination [Not Recovered/Not Resolved]
  - Hyperhidrosis [Not Recovered/Not Resolved]
  - Lymphoedema [Not Recovered/Not Resolved]
  - Malaise [Not Recovered/Not Resolved]
  - Migraine [Not Recovered/Not Resolved]
  - Myocardial infarction [Not Recovered/Not Resolved]
  - Oesophageal pain [Not Recovered/Not Resolved]
  - Oesophageal spasm [Not Recovered/Not Resolved]
  - Pneumonia [Not Recovered/Not Resolved]
  - Pruritus [Not Recovered/Not Resolved]
  - Rash [Not Recovered/Not Resolved]
  - Sleep apnoea syndrome [Not Recovered/Not Resolved]
  - Stomatitis [Not Recovered/Not Resolved]
  - Tinnitus [Not Recovered/Not Resolved]
  - Urticaria [Not Recovered/Not Resolved]
  - Vision blurred [Not Recovered/Not Resolved]
  - Vomiting [Not Recovered/Not Resolved]
  - Toxicity to various agents [Recovered/Resolved]
